FAERS Safety Report 25057327 (Version 1)
Quarter: 2025Q1

REPORT INFORMATION
  Report Type: Spontaneous
  Country: US (occurrence: US)
  Receive Date: 20250310
  Receipt Date: 20250310
  Transmission Date: 20250409
  Serious: Yes (Other)
  Sender: BRISTOL-MYERS SQUIBB COMPANY
  Company Number: US-BRISTOL-MYERS SQUIBB COMPANY-2025-032005

PATIENT
  Age: 75 Year
  Sex: Male

DRUGS (1)
  1. POMALYST [Suspect]
     Active Substance: POMALIDOMIDE
     Indication: Plasma cell myeloma recurrent
     Dosage: TAKE 1 CAPSULE BY MOUTH EVERY DAY ON DAYS 1-14 WITH 14 DAYS OFF
     Route: 048

REACTIONS (6)
  - White blood cell count decreased [Recovering/Resolving]
  - Red blood cell count decreased [Recovering/Resolving]
  - Back pain [Recovering/Resolving]
  - Diarrhoea [Recovering/Resolving]
  - Pulmonary thrombosis [Recovering/Resolving]
  - Off label use [Unknown]
